FAERS Safety Report 5563988-1 (Version None)
Quarter: 2007Q4

REPORT INFORMATION
  Report Type: 
  Country: None (occurrence: None)
  Receive Date: 20071217
  Receipt Date: 20071205
  Transmission Date: 20080405
  Serious: Yes (Hospitalization, Other)
  Sender: FDA-Public Use
  Company Number: PH-PFIZER INC-2007005120

PATIENT
  Sex: Male
  Weight: 63.5 kg

DRUGS (8)
  1. SU-011,248 [Suspect]
     Indication: RENAL CELL CARCINOMA STAGE UNSPECIFIED
     Route: 048
  2. SU-011,248 [Suspect]
     Route: 048
  3. SU-011,248 [Suspect]
     Route: 048
  4. SU-011,248 [Suspect]
     Route: 048
  5. FLUIMUCIL [Concomitant]
     Route: 048
  6. NEUROBION [Concomitant]
     Route: 048
     Dates: start: 20060323
  7. LIPITOR [Concomitant]
     Route: 048
     Dates: start: 20050808
  8. NEURONTIN [Concomitant]
     Route: 048
     Dates: start: 20060323

REACTIONS (2)
  - FISTULA [None]
  - PERIANAL ABSCESS [None]
